FAERS Safety Report 17583053 (Version 1)
Quarter: 2020Q1

REPORT INFORMATION
  Report Type: Spontaneous
  Country: SK (occurrence: SK)
  Receive Date: 20200325
  Receipt Date: 20200325
  Transmission Date: 20200409
  Serious: Yes (Hospitalization)
  Sender: FDA-Public Use
  Company Number: SK-BAXTER-2020BAX006054

PATIENT
  Age: 80 Year
  Sex: Female
  Weight: 62 kg

DRUGS (8)
  1. EGILOK [Concomitant]
     Active Substance: METOPROLOL TARTRATE
     Indication: PRODUCT USED FOR UNKNOWN INDICATION
     Dosage: 1-0-1
     Route: 065
  2. DIGOXIN. [Concomitant]
     Active Substance: DIGOXIN
     Indication: PRODUCT USED FOR UNKNOWN INDICATION
     Dosage: 1-0-0
     Route: 065
  3. NOLPAZA [Concomitant]
     Active Substance: PANTOPRAZOLE SODIUM
     Indication: PRODUCT USED FOR UNKNOWN INDICATION
     Dosage: 1-0-0
     Route: 065
  4. METFORMIN [Concomitant]
     Active Substance: METFORMIN HYDROCHLORIDE
     Indication: PRODUCT USED FOR UNKNOWN INDICATION
     Dosage: 0-1-0
     Route: 065
  5. FUROSEMIDE NORAMEDA 10 MG/ML INJEKCNY ROZTOK [Suspect]
     Active Substance: FUROSEMIDE
     Indication: ESSENTIAL HYPERTENSION
     Dosage: 1-0-0
     Route: 065
  6. MILURIT [Concomitant]
     Active Substance: ALLOPURINOL
     Indication: PRODUCT USED FOR UNKNOWN INDICATION
     Dosage: 0-1-0
     Route: 065
  7. WARFARIN [Concomitant]
     Active Substance: WARFARIN
     Indication: PRODUCT USED FOR UNKNOWN INDICATION
     Dosage: 1-0-0
     Route: 065
  8. ATORIS [Concomitant]
     Active Substance: ATORVASTATIN CALCIUM
     Indication: PRODUCT USED FOR UNKNOWN INDICATION
     Dosage: 0-0-1
     Route: 065

REACTIONS (1)
  - Hyponatraemia [Recovered/Resolved]

NARRATIVE: CASE EVENT DATE: 20190101
